FAERS Safety Report 4849901-0 (Version None)
Quarter: 2005Q4

REPORT INFORMATION
  Report Type: 
  Country: None (occurrence: None)
  Receive Date: 20051114
  Receipt Date: 20050907
  Transmission Date: 20060501
  Serious: Yes (Life-Threatening, Other)
  Sender: FDA-Public Use
  Company Number: 20427

PATIENT
  Age: 74 Year
  Sex: Female
  Weight: 89.8122 kg

DRUGS (1)
  1. PROPOFOL [Suspect]
     Indication: COLONOSCOPY
     Dosage: 676326
     Dates: start: 20050826

REACTIONS (1)
  - BRADYCARDIA [None]
